FAERS Safety Report 22219318 (Version 1)
Quarter: 2023Q2

REPORT INFORMATION
  Report Type: Spontaneous
  Country: US (occurrence: None)
  Receive Date: 20230416
  Receipt Date: 20230416
  Transmission Date: 20230722
  Serious: Yes (Life-Threatening)
  Sender: FDA-Public Use
  Company Number: None

PATIENT
  Age: 23 Year
  Sex: Female

DRUGS (1)
  1. ACCUTANE [Suspect]
     Active Substance: ISOTRETINOIN
     Dates: start: 20200427, end: 20200703

REACTIONS (4)
  - Suicidal ideation [None]
  - Alcohol use [None]
  - Depression [None]
  - Hepatic enzyme increased [None]

NARRATIVE: CASE EVENT DATE: 20200622
